FAERS Safety Report 5050396-5 (Version None)
Quarter: 2006Q2

REPORT INFORMATION
  Report Type: 
  Country: None (occurrence: None)
  Receive Date: 20060614
  Receipt Date: 20060404
  Transmission Date: 20061013
  Serious: Yes (Other)
  Sender: FDA-Public Use
  Company Number: 429870

PATIENT
  Age: 56 Year
  Sex: Female
  Weight: 77.1 kg

DRUGS (1)
  1. BONIVA [Suspect]
     Indication: OSTEOPOROSIS POSTMENOPAUSAL
     Dosage: 150 MG ORAL
     Route: 048
     Dates: start: 20051111

REACTIONS (6)
  - DYSPHAGIA [None]
  - MUSCLE SPASMS [None]
  - MYALGIA [None]
  - PAIN [None]
  - PAIN IN JAW [None]
  - TOOTHACHE [None]
